FAERS Safety Report 6577844-3 (Version None)
Quarter: 2010Q1

REPORT INFORMATION
  Report Type: 
  Country: None (occurrence: None)
  Receive Date: 20100211
  Receipt Date: 20100203
  Transmission Date: 20100710
  Serious: Yes (Hospitalization)
  Sender: FDA-Public Use
  Company Number: BE-ROCHE-683595

PATIENT
  Sex: Female
  Weight: 130 kg

DRUGS (11)
  1. METHOXY POLYETHYLENE GLYCOL-EPOETIN BETA [Suspect]
     Dosage: DOSAGE FORM: PRE-FILLED SYRINGE.
     Route: 042
     Dates: start: 20090303
  2. METHOXY POLYETHYLENE GLYCOL-EPOETIN BETA [Suspect]
     Dosage: LAST DOSE PRIOR TO SAE: 09 JUNE 2009
     Route: 042
     Dates: start: 20090609
  3. RENAGEL [Concomitant]
     Dates: start: 20080201
  4. RENAGEL [Concomitant]
     Dosage: TDD REPORTED AS 9/D
     Dates: start: 20080207
  5. BEFACT FORTE [Concomitant]
     Dosage: TDD REPORTED AS 2X/D
     Dates: start: 20080207
  6. MOVICOL [Concomitant]
     Dosage: TDD REPORTED AS 1X1D
     Dates: start: 20080201
  7. CALCIUM CARBONATE [Concomitant]
     Dates: start: 20071029
  8. CALCIUM CARBONATE [Concomitant]
     Dosage: TDD REPORTED AS 6 PER DAY.
     Dates: start: 20070601
  9. NATRIUM [Concomitant]
     Dosage: DRUG: NATRIUM ^KAYEXALATE^
     Dates: start: 20080314
  10. DAFALGAN [Concomitant]
     Dates: start: 20080201
  11. FLUDROCORTISONE [Concomitant]
     Dates: start: 20090911

REACTIONS (1)
  - CATHETER SITE INFECTION [None]
